FAERS Safety Report 15407990 (Version 4)
Quarter: 2018Q4

REPORT INFORMATION
  Report Type: Report from Study
  Country: GB (occurrence: GB)
  Receive Date: 20180920
  Receipt Date: 20181022
  Transmission Date: 20190204
  Serious: Yes (Other)
  Sender: FDA-Public Use
  Company Number: GB-JNJFOC-20180910009

PATIENT
  Sex: Female

DRUGS (1)
  1. STELARA [Suspect]
     Active Substance: USTEKINUMAB
     Indication: PSORIASIS
     Route: 058
     Dates: start: 2013

REACTIONS (4)
  - Back pain [Unknown]
  - Lower respiratory tract infection [Not Recovered/Not Resolved]
  - Pain [Unknown]
  - Ear discomfort [Unknown]

NARRATIVE: CASE EVENT DATE: 2018
